FAERS Safety Report 10075922 (Version 3)
Quarter: 2014Q2

REPORT INFORMATION
  Report Type: Spontaneous
  Country: US (occurrence: US)
  Receive Date: 20140414
  Receipt Date: 20140606
  Transmission Date: 20141212
  Serious: Yes (Other)
  Sender: FDA-Public Use
  Company Number: US-BAYER-2014-050980

PATIENT
  Age: 23 Year
  Sex: Female
  Weight: 48 kg

DRUGS (1)
  1. MIDOL MENSTRUAL COMPLETE FORMULA GELCAPS [Suspect]
     Indication: DYSMENORRHOEA
     Dosage: UNK
     Route: 048
     Dates: start: 20140402

REACTIONS (5)
  - Abasia [Recovered/Resolved]
  - Mobility decreased [Recovered/Resolved]
  - Abdominal pain upper [Recovered/Resolved]
  - Expired product administered [None]
  - Toxicity to various agents [Not Recovered/Not Resolved]
